FAERS Safety Report 5776278-9 (Version None)
Quarter: 2008Q2

REPORT INFORMATION
  Report Type: 
  Country: None (occurrence: None)
  Receive Date: 20080617
  Receipt Date: 20080617
  Transmission Date: 20081010
  Serious: Yes (Hospitalization)
  Sender: FDA-Public Use
  Company Number: None

PATIENT
  Age: 79 Year
  Sex: Female
  Weight: 76 kg

DRUGS (14)
  1. WARFARIN SODIUM [Suspect]
     Indication: ATRIAL FIBRILLATION
     Dosage: 5MG DAILY PO
     Route: 048
  2. PRILOSEC [Concomitant]
  3. LIPITOR [Concomitant]
  4. HYDROCHLOROTHIAZIDE [Concomitant]
  5. ACTOS [Concomitant]
  6. LISINOPRIL [Concomitant]
  7. GLYBURIDE [Concomitant]
  8. TYLENOL [Concomitant]
  9. PREVACID [Concomitant]
  10. CLONIDINE [Concomitant]
  11. FOLIC ACID [Concomitant]
  12. PREDNISONE [Concomitant]
  13. AVANDIA [Concomitant]
  14. METHOTREXATE [Concomitant]

REACTIONS (2)
  - HAEMORRHAGIC ANAEMIA [None]
  - RECTAL HAEMORRHAGE [None]
